FAERS Safety Report 18733842 (Version 3)
Quarter: 2021Q1

REPORT INFORMATION
  Report Type: Spontaneous
  Country: AU (occurrence: AU)
  Receive Date: 20210113
  Receipt Date: 20210219
  Transmission Date: 20210419
  Serious: Yes (Other)
  Sender: FDA-Public Use
  Company Number: AU-ORION CORPORATION ORION PHARMA-21_00012440

PATIENT
  Age: 25 Year
  Sex: Female

DRUGS (3)
  1. PREDNISOLONE. [Concomitant]
     Active Substance: PREDNISOLONE
     Dosage: 10?15 MILLIGRAM
     Route: 065
  2. ANAKINRA [Concomitant]
     Active Substance: ANAKINRA
     Route: 065
  3. METHOTREXATE (TRADE NAME UNKNOWN) [Suspect]
     Active Substance: METHOTREXATE
     Indication: TUMOUR NECROSIS FACTOR RECEPTOR-ASSOCIATED PERIODIC SYNDROME
     Dosage: 10?20 MILLIGRAM
     Route: 065

REACTIONS (8)
  - Product use in unapproved indication [Unknown]
  - Fasciitis [Unknown]
  - Affective disorder [Unknown]
  - Myositis [Unknown]
  - Drug ineffective for unapproved indication [Unknown]
  - Panniculitis [Unknown]
  - C-reactive protein increased [Unknown]
  - Red blood cell sedimentation rate increased [Unknown]
